FAERS Safety Report 8231065-7 (Version None)
Quarter: 2012Q1

REPORT INFORMATION
  Report Type: 
  Country: None (occurrence: None)
  Receive Date: 20120321
  Receipt Date: 20120309
  Transmission Date: 20120608
  Serious: Yes (Death)
  Sender: FDA-Public Use
  Company Number: UTC-016532

PATIENT
  Age: 57 Year
  Sex: Female

DRUGS (11)
  1. PROAIR HFA [Concomitant]
  2. NEXIUM [Concomitant]
  3. TYVASO [Suspect]
     Indication: ASTHMA
     Dosage: 72 MCG (18 MCG, 4 IN 1 D), INHALATION
     Route: 055
     Dates: start: 20120106
  4. TYVASO [Suspect]
     Indication: PULMONARY ARTERIAL HYPERTENSION
     Dosage: 72 MCG (18 MCG, 4 IN 1 D), INHALATION
     Route: 055
     Dates: start: 20120106
  5. SYMBICORT [Concomitant]
  6. NIFEDIPINE [Concomitant]
  7. ACCOLATE [Concomitant]
  8. CLARITIN [Concomitant]
  9. XOLAIR [Concomitant]
  10. SPIRIVA INHALER (TIOTROPIUM BROMIDE) [Concomitant]
  11. ALBUTEROL [Concomitant]

REACTIONS (1)
  - DEATH [None]
